FAERS Safety Report 9334196 (Version 1)
Quarter: 2013Q2

REPORT INFORMATION
  Report Type: Spontaneous
  Country: GB (occurrence: None)
  Receive Date: 20130604
  Receipt Date: 20130604
  Transmission Date: 20140414
  Serious: Yes (Other)
  Sender: FDA-Public Use
  Company Number: GER/UKI/13/0029781

PATIENT
  Age: 56 Year
  Sex: Male

DRUGS (5)
  1. OMEPRAZOLE (OMEPRAZOLE) [Suspect]
     Indication: REFLUX GASTRITIS
     Route: 048
     Dates: start: 20070216, end: 20130403
  2. DOMPERIDONE [Concomitant]
  3. AMITRIPTYLINE [Concomitant]
  4. CO-CODAMOL (PANADEINE CO) [Concomitant]
  5. NAPROXEN (NAPROXEN SODIUM) [Concomitant]

REACTIONS (3)
  - Myopathy [None]
  - Pain [None]
  - Muscular weakness [None]
